FAERS Safety Report 9593176 (Version 2)
Quarter: 2013Q4

REPORT INFORMATION
  Report Type: Spontaneous
  Country: GB (occurrence: GB)
  Receive Date: 20131004
  Receipt Date: 20131004
  Transmission Date: 20140711
  Serious: Yes (Hospitalization)
  Sender: FDA-Public Use
  Company Number: PHHY2012GB120811

PATIENT
  Age: 79 Year
  Sex: 0

DRUGS (6)
  1. PHENOXYMETHYLPENICILLIN [Suspect]
     Dosage: 500 MG, QID
     Route: 048
     Dates: start: 20100917
  2. CO-AMOXICLAV [Suspect]
     Indication: OTITIS EXTERNA
     Dosage: 625 MG, TID
     Route: 048
     Dates: start: 20110204, end: 20110211
  3. PIPERACILLIN+TAZOBACTAM [Suspect]
     Dosage: 4.5 G, TID
     Route: 041
     Dates: start: 20110421, end: 20110427
  4. METRONIDAZOLE [Suspect]
     Route: 048
     Dates: start: 20100406
  5. FLUCLOXACILLIN [Suspect]
     Dosage: 500 MG, QID
     Route: 048
     Dates: start: 20100917, end: 20100923
  6. ACICLOVIR [Concomitant]

REACTIONS (2)
  - Clostridium difficile colitis [Recovered/Resolved]
  - Diarrhoea [Recovered/Resolved]
